FAERS Safety Report 5208061-7 (Version None)
Quarter: 2007Q1

REPORT INFORMATION
  Report Type: 
  Country: None (occurrence: None)
  Receive Date: 20070115
  Receipt Date: 20070108
  Transmission Date: 20070707
  Serious: Yes (Life-Threatening, Hospitalization)
  Sender: FDA-Public Use
  Company Number: JP-ROCHE-476709

PATIENT
  Age: 65 Year
  Sex: Male

DRUGS (11)
  1. PANALDINE [Suspect]
     Indication: ANGIOPATHY
     Dosage: OTHER REPORTED INDICATION: THROMBOSIS PROPHYLAXIS AFTER CORONARY ARTERIAL STENT INSERTION
     Route: 048
     Dates: start: 20061122, end: 20061202
  2. GASTER [Suspect]
     Route: 048
     Dates: start: 20061101, end: 20061206
  3. TICLOPIDINE HYDROCHLORIDE [Suspect]
     Indication: MYOCARDIAL INFARCTION
     Dosage: REPORTED AS PARACLODIN.
     Route: 048
     Dates: start: 20061101, end: 20061121
  4. ASPIRIN [Concomitant]
     Indication: CORONARY ARTERIAL STENT INSERTION
     Route: 048
     Dates: start: 20061101
  5. NICORANDIL [Concomitant]
     Route: 048
     Dates: start: 20061020
  6. MEVALOTIN [Concomitant]
     Route: 048
     Dates: start: 20061101
  7. SIGMART [Concomitant]
     Indication: ANGINA PECTORIS
     Route: 048
     Dates: start: 20061101
  8. FAMOTIDINE [Concomitant]
     Dosage: REPORTED AS GASDOCK
     Route: 048
     Dates: start: 20061023
  9. NOVORAPID [Concomitant]
     Indication: DIABETES MELLITUS
     Route: 058
     Dates: start: 20061101, end: 20061108
  10. NOVOLIN 50/50 [Concomitant]
     Indication: DIABETES MELLITUS
     Route: 058
     Dates: start: 20061101, end: 20061108
  11. HUMALOG [Concomitant]
     Indication: DIABETES MELLITUS
     Route: 058
     Dates: start: 20061109

REACTIONS (7)
  - AGRANULOCYTOSIS [None]
  - ALANINE AMINOTRANSFERASE INCREASED [None]
  - CHILLS [None]
  - GAMMA-GLUTAMYLTRANSFERASE INCREASED [None]
  - GRANULOCYTOPENIA [None]
  - PHARYNGITIS [None]
  - PYREXIA [None]
